FAERS Safety Report 19390753 (Version 3)
Quarter: 2021Q3

REPORT INFORMATION
  Report Type: Other
  Country: DE (occurrence: DE)
  Receive Date: 20210608
  Receipt Date: 20210917
  Transmission Date: 20211014
  Serious: Yes (Life-Threatening, Hospitalization, Other)
  Sender: FDA-Public Use
  Company Number: DE-DECIPHERA PHARMACEUTICALS LLC-2021DE000462

PATIENT
  Age: 80 Year
  Sex: Female
  Weight: 46 kg

DRUGS (3)
  1. DCC?2618 [Suspect]
     Active Substance: RIPRETINIB
     Dosage: 150 MILLIGRAM, QD
     Route: 048
     Dates: start: 20210612
  2. RISPERDAL [Concomitant]
     Active Substance: RISPERIDONE
     Indication: DEMENTIA
     Dosage: 0.5 MILLIGRAM, QD
     Route: 048
     Dates: start: 20210603
  3. DCC?2618 [Suspect]
     Active Substance: RIPRETINIB
     Indication: GASTROINTESTINAL STROMAL TUMOUR
     Dosage: 150 MILLIGRAM, DAILY
     Route: 048
     Dates: start: 20210414, end: 20210603

REACTIONS (2)
  - Cerebral ischaemia [Recovered/Resolved]
  - Cerebellar ischaemia [Recovered/Resolved]

NARRATIVE: CASE EVENT DATE: 20210603
